FAERS Safety Report 13231820 (Version 4)
Quarter: 2017Q1

REPORT INFORMATION
  Report Type: Spontaneous
  Country: ES (occurrence: ES)
  Receive Date: 20170214
  Receipt Date: 20170310
  Transmission Date: 20170428
  Serious: Yes (Death, Life-Threatening)
  Sender: FDA-Public Use
  Company Number: ES-SA-2017SA015694

PATIENT
  Sex: Female

DRUGS (29)
  1. OMEPRAZOLE. [Concomitant]
     Active Substance: OMEPRAZOLE
     Indication: GASTRITIS PROPHYLAXIS
     Route: 042
     Dates: start: 20170107, end: 20170115
  2. ENOXAPARIN SODIUM. [Suspect]
     Active Substance: ENOXAPARIN SODIUM
     Indication: THROMBOSIS PROPHYLAXIS
     Route: 058
     Dates: start: 20170108, end: 20170110
  3. ENOXAPARIN SODIUM. [Suspect]
     Active Substance: ENOXAPARIN SODIUM
     Indication: PULMONARY EMBOLISM
     Route: 058
     Dates: start: 20170111, end: 20170121
  4. BLINDED THERAPY [Suspect]
     Active Substance: INVESTIGATIONAL PRODUCT
     Indication: INFLUENZA
     Route: 042
     Dates: start: 20170109, end: 20170109
  5. FUROSEMIDE. [Concomitant]
     Active Substance: FUROSEMIDE
     Indication: CARDIAC FAILURE
     Route: 048
     Dates: start: 201701, end: 20170121
  6. ACETAZOLAMIDE. [Concomitant]
     Active Substance: ACETAZOLAMIDE
     Indication: METABOLIC ALKALOSIS
     Route: 048
     Dates: start: 20170107, end: 20170117
  7. DIGOXIN. [Concomitant]
     Active Substance: DIGOXIN
     Indication: ARRHYTHMIA
     Route: 042
     Dates: start: 20170112, end: 20170121
  8. DILTIAZEM. [Concomitant]
     Active Substance: DILTIAZEM
     Indication: ARRHYTHMIA
     Route: 048
     Dates: start: 20170116, end: 20170121
  9. METHYLPREDNISOLONE. [Concomitant]
     Active Substance: METHYLPREDNISOLONE
     Indication: BRONCHOSPASM
     Route: 042
     Dates: start: 20170107, end: 20170121
  10. OSELTAMIVIR [Suspect]
     Active Substance: OSELTAMIVIR
     Indication: INFLUENZA
     Route: 048
     Dates: start: 20170112
  11. OMEPRAZOLE. [Concomitant]
     Active Substance: OMEPRAZOLE
     Indication: GASTRITIS PROPHYLAXIS
     Route: 048
     Dates: start: 2016, end: 20170121
  12. ENOXAPARIN SODIUM. [Suspect]
     Active Substance: ENOXAPARIN SODIUM
     Indication: PULMONARY EMBOLISM
     Route: 058
     Dates: start: 20170108, end: 20170110
  13. ENOXAPARIN SODIUM. [Suspect]
     Active Substance: ENOXAPARIN SODIUM
     Indication: THROMBOSIS PROPHYLAXIS
     Route: 058
     Dates: start: 20170111, end: 20170121
  14. COLECALCIFEROL [Concomitant]
     Active Substance: CHOLECALCIFEROL
     Indication: OSTEOPOROSIS
     Dosage: DOSE:800 UNIT(S)
     Route: 048
     Dates: start: 2016, end: 20170107
  15. SALBUTAMOL [Concomitant]
     Active Substance: ALBUTEROL
     Indication: BRONCHOSPASM
     Route: 055
     Dates: end: 20170121
  16. SALBUTAMOL [Concomitant]
     Active Substance: ALBUTEROL
     Indication: ASTHMA
     Route: 050
     Dates: start: 20170107, end: 20170121
  17. SALBUTAMOL [Concomitant]
     Active Substance: ALBUTEROL
     Indication: ASTHMA
     Route: 055
     Dates: end: 20170121
  18. CLAVULANIC ACID [Concomitant]
     Active Substance: CLAVULANIC ACID
     Indication: RESPIRATORY TRACT INFECTION
     Route: 042
     Dates: start: 20170110, end: 20170121
  19. PARACETAMOL [Concomitant]
     Active Substance: ACETAMINOPHEN
     Indication: ANALGESIC THERAPY
     Route: 042
     Dates: start: 20170113, end: 20170113
  20. FUROSEMIDE. [Concomitant]
     Active Substance: FUROSEMIDE
     Indication: CARDIAC FAILURE
     Route: 042
     Dates: start: 20170107, end: 20170121
  21. SALBUTAMOL [Concomitant]
     Active Substance: ALBUTEROL
     Indication: BRONCHOSPASM
     Route: 050
     Dates: start: 20170107, end: 20170121
  22. DILTIAZEM. [Concomitant]
     Active Substance: DILTIAZEM
     Indication: ARRHYTHMIA
     Route: 048
     Dates: start: 20170114, end: 20170115
  23. INSULIN [Concomitant]
     Active Substance: INSULIN NOS
     Indication: HYPERGLYCAEMIA
     Route: 042
     Dates: start: 20170107
  24. PARACETAMOL [Concomitant]
     Active Substance: ACETAMINOPHEN
     Indication: ANALGESIC THERAPY
     Dosage: FREQUENCY OTHER.
     Route: 042
     Dates: start: 20170121, end: 20170121
  25. POTASSIUM CHLORIDE. [Concomitant]
     Active Substance: POTASSIUM CHLORIDE
     Indication: HYPOKALAEMIA
     Dosage: DOSE 40 (OTHER).
     Route: 042
     Dates: start: 20170121, end: 20170121
  26. OSELTAMIVIR [Suspect]
     Active Substance: OSELTAMIVIR
     Indication: INFLUENZA
     Route: 048
     Dates: start: 20170107, end: 20170108
  27. AMOXICILLIN. [Concomitant]
     Active Substance: AMOXICILLIN
     Indication: RESPIRATORY TRACT INFECTION
     Route: 042
     Dates: start: 20170110, end: 20170121
  28. IPRATROPIUM BROMIDE. [Concomitant]
     Active Substance: IPRATROPIUM BROMIDE
     Indication: BRONCHOSPASM
     Route: 050
     Dates: start: 20170107, end: 20170121
  29. OSELTAMIVIR [Suspect]
     Active Substance: OSELTAMIVIR
     Indication: INFLUENZA
     Route: 048
     Dates: start: 20170109

REACTIONS (5)
  - Septic shock [Fatal]
  - Hypovolaemic shock [Recovered/Resolved]
  - Intestinal ischaemia [Unknown]
  - Haemorrhage [Recovered/Resolved]
  - Suture rupture [Fatal]

NARRATIVE: CASE EVENT DATE: 20170121
